FAERS Safety Report 19462150 (Version 1)
Quarter: 2021Q2

REPORT INFORMATION
  Report Type: Spontaneous
  Country: US (occurrence: US)
  Receive Date: 20210625
  Receipt Date: 20210625
  Transmission Date: 20210717
  Serious: No
  Sender: FDA-Public Use
  Company Number: US-GLENMARK PHARMACEUTICALS-2020GMK049303

PATIENT

DRUGS (2)
  1. CURCUMIN [Concomitant]
     Active Substance: CURCUMIN
     Indication: MIGRAINE
     Dosage: UNK
     Route: 065
  2. ZOLMITRIPTAN TABLETS USP, 5 MG [Suspect]
     Active Substance: ZOLMITRIPTAN
     Indication: MIGRAINE
     Dosage: UNK
     Route: 065

REACTIONS (1)
  - Paraesthesia [Unknown]

NARRATIVE: CASE EVENT DATE: 20200819
